FAERS Safety Report 17247734 (Version 1)
Quarter: 2020Q1

REPORT INFORMATION
  Report Type: Spontaneous
  Country: US (occurrence: US)
  Receive Date: 20200107
  Receipt Date: 20200107
  Transmission Date: 20200409
  Serious: Yes (Hospitalization, Other)
  Sender: FDA-Public Use
  Company Number: None

PATIENT
  Age: 30 Year
  Sex: Female
  Weight: 61.65 kg

DRUGS (12)
  1. MULTI-VITAMIN [Concomitant]
     Active Substance: .ALPHA.-TOCOPHEROL ACETATE, DL-\ASCORBIC ACID\CYANOCOBALAMIN\FLUORIDE ION\FOLIC ACID\NIACIN\PYRIDOXINE\RIBOFLAVIN\THIAMINE\VITAMIN A\VITAMIN D
  2. MAGNESIUM [Concomitant]
     Active Substance: MAGNESIUM
  3. QUDEXY 50 MG [Concomitant]
  4. SPRINTEC28 [Concomitant]
  5. VITAMIN D [Concomitant]
     Active Substance: VITAMIN D NOS
  6. DIPRIVAN [Suspect]
     Active Substance: PROPOFOL
     Indication: ANAESTHESIA
  7. ZINC. [Concomitant]
     Active Substance: ZINC
  8. NETTLE [Concomitant]
     Active Substance: URTICA DIOICA POLLEN
  9. SUMATRIPTAN 100MG [Concomitant]
     Active Substance: SUMATRIPTAN
  10. SINGULAIR [Concomitant]
     Active Substance: MONTELUKAST SODIUM
  11. ADVIL MIGRAINE [Concomitant]
     Active Substance: IBUPROFEN
  12. FISH OIL [Concomitant]
     Active Substance: FISH OIL

REACTIONS (3)
  - Food allergy [None]
  - Anaphylactic reaction [None]
  - Allergic reaction to excipient [None]

NARRATIVE: CASE EVENT DATE: 20191223
